FAERS Safety Report 8383116-7 (Version None)
Quarter: 2012Q2

REPORT INFORMATION
  Report Type: 
  Country: None (occurrence: None)
  Receive Date: 20120524
  Receipt Date: 20120517
  Transmission Date: 20120825
  Serious: Yes (Other)
  Sender: FDA-Public Use
  Company Number: US-JNJFOC-20120514871

PATIENT
  Sex: Female
  Weight: 53.52 kg

DRUGS (1)
  1. SIMPONI [Suspect]
     Indication: RHEUMATOID ARTHRITIS
     Route: 058

REACTIONS (4)
  - DRUG DOSE OMISSION [None]
  - DEVICE MALFUNCTION [None]
  - ARTHRALGIA [None]
  - BONE DISORDER [None]
